FAERS Safety Report 16394920 (Version 5)
Quarter: 2019Q3

REPORT INFORMATION
  Report Type: Spontaneous
  Country: JP (occurrence: JP)
  Receive Date: 20190605
  Receipt Date: 20190715
  Transmission Date: 20191004
  Serious: Yes (Death, Other)
  Sender: FDA-Public Use
  Company Number: JP-PFIZER INC-2019230344

PATIENT
  Age: 49 Year
  Sex: Male

DRUGS (4)
  1. LORAZEPAM. [Suspect]
     Active Substance: LORAZEPAM
     Indication: COMPLETED SUICIDE
     Dosage: 12 TABLETS
     Route: 048
  2. AMLODIPINE BESILATE [Suspect]
     Active Substance: AMLODIPINE BESYLATE
     Indication: COMPLETED SUICIDE
     Dosage: 94 TABLETS
     Route: 048
  3. CLOMIPRAMINE HYDROCHLORIDE. [Suspect]
     Active Substance: CLOMIPRAMINE HYDROCHLORIDE
     Indication: COMPLETED SUICIDE
     Dosage: 10 TABLETS
     Route: 048
  4. ATORVASTATIN CALCIUM. [Suspect]
     Active Substance: ATORVASTATIN CALCIUM
     Indication: COMPLETED SUICIDE
     Dosage: 90 TABLETS
     Route: 048

REACTIONS (13)
  - Renal failure [Fatal]
  - Intestinal perforation [Fatal]
  - Peritonitis [Fatal]
  - Intentional overdose [Fatal]
  - Hepatic failure [Fatal]
  - Shock [Fatal]
  - Depressed level of consciousness [Unknown]
  - Blood creatine phosphokinase increased [Unknown]
  - Circulatory collapse [Fatal]
  - Coma [Fatal]
  - Haemodynamic instability [Unknown]
  - Completed suicide [Fatal]
  - Multiple organ dysfunction syndrome [Fatal]
